FAERS Safety Report 25151035 (Version 1)
Quarter: 2025Q2

REPORT INFORMATION
  Report Type: Spontaneous
  Country: US (occurrence: None)
  Receive Date: 20250402
  Receipt Date: 20250402
  Transmission Date: 20250717
  Serious: Yes (Hospitalization)
  Sender: FDA-CTU
  Company Number: None

PATIENT
  Sex: Female

DRUGS (3)
  1. DASATINIB [Suspect]
     Active Substance: DASATINIB
     Indication: Chronic myeloid leukaemia
     Dosage: FREQUENCY : DAILY;?
     Route: 048
     Dates: start: 20250319
  2. MELATONIN [Concomitant]
     Active Substance: MELATONIN
  3. MULTIPLE VIT [Concomitant]

REACTIONS (5)
  - Dyspnoea [None]
  - Diarrhoea [None]
  - Fluid retention [None]
  - Peripheral swelling [None]
  - Peripheral swelling [None]
